FAERS Safety Report 6640200-3 (Version None)
Quarter: 2010Q1

REPORT INFORMATION
  Report Type: 
  Country: None (occurrence: None)
  Receive Date: 20100318
  Receipt Date: 20100308
  Transmission Date: 20100710
  Serious: Yes (Hospitalization)
  Sender: FDA-Public Use
  Company Number: GB-ABBOTT-10P-167-0628305-00

PATIENT
  Weight: 90 kg

DRUGS (6)
  1. HUMIRA [Suspect]
     Indication: CROHN'S DISEASE
     Route: 058
     Dates: start: 20091114, end: 20100109
  2. HUMIRA [Suspect]
     Indication: ANKYLOSING SPONDYLITIS
  3. CODEINE SULFATE [Concomitant]
     Indication: PAIN
     Route: 048
  4. CODEINE SULFATE [Concomitant]
     Indication: DIARRHOEA
  5. MEBEVERINE [Concomitant]
     Indication: ABDOMINAL PAIN
     Route: 048
     Dates: start: 20070101
  6. OMEPRAZOLE [Concomitant]
     Indication: DYSPEPSIA
     Route: 048
     Dates: start: 20070101

REACTIONS (4)
  - NEURALGIA [None]
  - OEDEMA PERIPHERAL [None]
  - PETECHIAE [None]
  - VASCULITIC RASH [None]
